FAERS Safety Report 6638127-6 (Version None)
Quarter: 2010Q1

REPORT INFORMATION
  Report Type: 
  Country: None (occurrence: None)
  Receive Date: 20100315
  Receipt Date: 20100315
  Transmission Date: 20100710
  Serious: Yes (Other)
  Sender: FDA-Public Use
  Company Number: None

PATIENT
  Sex: Male

DRUGS (1)
  1. NUTROPIN [Suspect]
     Indication: THYROID DISORDER
     Dosage: 0.5 MG  DAILY SUBQ
     Route: 058
     Dates: start: 20100116, end: 20100312

REACTIONS (2)
  - ABDOMINAL DISTENSION [None]
  - CONTUSION [None]
